FAERS Safety Report 5452346-6 (Version None)
Quarter: 2007Q3

REPORT INFORMATION
  Report Type: 
  Country: None (occurrence: None)
  Receive Date: 20070912
  Receipt Date: 20070912
  Transmission Date: 20080115
  Serious: Yes (Other)
  Sender: FDA-Public Use
  Company Number: None

PATIENT
  Sex: Male
  Weight: 19.0511 kg

DRUGS (1)
  1. VIBRAMYCIN [Suspect]
     Indication: LYME DISEASE
     Dosage: 4.2 ML BID PO
     Route: 048
     Dates: start: 20070819, end: 20070901

REACTIONS (2)
  - PAIN IN EXTREMITY [None]
  - TONGUE DISCOLOURATION [None]
